FAERS Safety Report 21948758 (Version 1)
Quarter: 2023Q1

REPORT INFORMATION
  Report Type: Spontaneous
  Country: US (occurrence: US)
  Receive Date: 20230203
  Receipt Date: 20230203
  Transmission Date: 20230418
  Serious: Yes (Death, Other)
  Sender: FDA-Public Use
  Company Number: US-STERISCIENCE B.V.-2023-ST-000401

PATIENT
  Age: 45 Year
  Sex: Male

DRUGS (4)
  1. PIPERACILLIN SODIUM\TAZOBACTAM SODIUM [Suspect]
     Active Substance: PIPERACILLIN SODIUM\TAZOBACTAM SODIUM
     Indication: Cellulitis staphylococcal
     Dosage: UNK
     Route: 065
  2. VANCOMYCIN [Suspect]
     Active Substance: VANCOMYCIN
     Indication: Cellulitis staphylococcal
     Dosage: UNK
     Route: 065
  3. ASPIRIN [Suspect]
     Active Substance: ASPIRIN
     Indication: Arteriovenous fistula thrombosis
     Dosage: 81 MILLIGRAM, QD
  4. HEPARIN [Suspect]
     Active Substance: HEPARIN SODIUM
     Indication: Arteriovenous fistula thrombosis
     Dosage: 5000 INTERNATIONAL UNIT OF IV BOLUS
     Route: 042

REACTIONS (1)
  - Drug ineffective [Fatal]
